FAERS Safety Report 13423459 (Version 2)
Quarter: 2020Q3

REPORT INFORMATION
  Report Type: Report from Study
  Country: US (occurrence: US)
  Receive Date: 20170410
  Receipt Date: 20170717
  Transmission Date: 20201104
  Serious: Yes (Life-Threatening, Hospitalization)
  Sender: FDA-Public Use
  Company Number: US-JNJFOC-20151104710

PATIENT
  Age: 49 Year
  Sex: Male

DRUGS (18)
  1. BENADRYL [Concomitant]
     Active Substance: DIPHENHYDRAMINE HYDROCHLORIDE
     Indication: HYPERSENSITIVITY
     Route: 048
  2. IBRUTINIB [Suspect]
     Active Substance: IBRUTINIB
     Route: 048
  3. ALLOPURINOL. [Concomitant]
     Active Substance: ALLOPURINOL
     Route: 048
  4. GABAPENTIN. [Concomitant]
     Active Substance: GABAPENTIN
     Dosage: CAPSULE, 300 MG TID
     Route: 048
     Dates: start: 20150810, end: 20151207
  5. ACYCLOVIR. [Concomitant]
     Active Substance: ACYCLOVIR
     Dosage: 400 MG, BID, TABLET
     Route: 048
     Dates: start: 20151029, end: 20151029
  6. MG 2 PLUS [Concomitant]
     Dosage: TABLET, UNK, BID
     Route: 048
     Dates: start: 20150824
  7. TRIAMCINOLONE [Concomitant]
     Active Substance: TRIAMCINOLONE
     Route: 061
  8. ENTECAVIR. [Concomitant]
     Active Substance: ENTECAVIR
  9. ZOFRAN [Concomitant]
     Active Substance: ONDANSETRON HYDROCHLORIDE
     Dosage: 4MG, QID PRN, TABLET
     Route: 048
     Dates: start: 20150201
  10. ACETAMINOPHEN. [Concomitant]
     Active Substance: ACETAMINOPHEN
     Indication: PAIN
     Dosage: EVERY 8 HOURS 500 MG, PRN
     Route: 048
     Dates: start: 20151026, end: 20151125
  11. BACTRIM [Concomitant]
     Active Substance: SULFAMETHOXAZOLE\TRIMETHOPRIM
     Dosage: 800?160MG, 3X PER WEEK
     Route: 048
     Dates: start: 20151029, end: 20151029
  12. IBRUTINIB [Suspect]
     Active Substance: IBRUTINIB
     Indication: LYMPHOMA
     Route: 048
     Dates: start: 20150625, end: 20151012
  13. BARACLUDE [Concomitant]
     Active Substance: ENTECAVIR
     Route: 048
  14. MEDI4736 [Suspect]
     Active Substance: DURVALUMAB
     Indication: LYMPHOMA
     Route: 042
     Dates: start: 20150630, end: 20151005
  15. OMEPRAZOLE. [Concomitant]
     Active Substance: OMEPRAZOLE
     Dosage: 20 MG, QD CAPSULE
     Route: 048
  16. DOCUSATE SODIUM. [Concomitant]
     Active Substance: DOCUSATE SODIUM
     Indication: CONSTIPATION
     Route: 048
     Dates: start: 20151026, end: 20151125
  17. OPCON?A [Concomitant]
     Active Substance: NAPHAZOLINE HYDROCHLORIDE\PHENIRAMINE MALEATE
     Indication: DRY EYE
     Route: 047
     Dates: start: 20151026, end: 20151125
  18. AMOXICILLIN CLAVULANIC ACID [Concomitant]
     Active Substance: AMOXICILLIN\CLAVULANIC ACID
     Dosage: 875?125 MG, BID
     Route: 048
     Dates: end: 20151001

REACTIONS (4)
  - Febrile neutropenia [Recovered/Resolved]
  - Neutropenia [Recovered/Resolved]
  - Febrile neutropenia [Recovered/Resolved]
  - Neutropenia [Recovered/Resolved]

NARRATIVE: CASE EVENT DATE: 20151019
